FAERS Safety Report 4320421-5 (Version None)
Quarter: 2004Q1

REPORT INFORMATION
  Report Type: 
  Country: None (occurrence: None)
  Receive Date: 20040319
  Receipt Date: 20040319
  Transmission Date: 20041129
  Serious: Yes (Hospitalization)
  Sender: FDA-Public Use
  Company Number: None

PATIENT
  Age: 65 Year
  Sex: Male
  Weight: 74.8435 kg

DRUGS (6)
  1. CYTOXAN [Suspect]
     Indication: NON-HODGKIN'S LYMPHOMA
     Dosage: 1380 MG IV X D1
     Route: 042
     Dates: start: 20040221
  2. ADRIAMYCIN PFS [Suspect]
     Indication: NON-HODGKIN'S LYMPHOMA
     Dosage: 1G-92 MG IV X D1
     Route: 042
     Dates: start: 20040221
  3. VINCRISTINE [Suspect]
     Dosage: 2 MG IV X D1
     Route: 042
     Dates: start: 20040224
  4. GEMCITABINE [Suspect]
     Dosage: 1380 MG IV Q D1-4
     Route: 042
     Dates: start: 20040224
  5. PREDNISONE [Concomitant]
  6. NEULASTA [Concomitant]

REACTIONS (9)
  - BLOOD PRESSURE DIASTOLIC DECREASED [None]
  - CONDITION AGGRAVATED [None]
  - DEHYDRATION [None]
  - MARKEDLY REDUCED DIETARY INTAKE [None]
  - NAUSEA [None]
  - OEDEMA PERIPHERAL [None]
  - PITTING OEDEMA [None]
  - RETCHING [None]
  - VOMITING [None]
